FAERS Safety Report 4850905-2 (Version None)
Quarter: 2005Q4

REPORT INFORMATION
  Report Type: 
  Country: None (occurrence: None)
  Receive Date: 20051212
  Receipt Date: 20051128
  Transmission Date: 20060501
  Serious: Yes (Other)
  Sender: FDA-Public Use
  Company Number: FR-GLAXOSMITHKLINE-B0402813A

PATIENT
  Age: 36 Year
  Sex: Male

DRUGS (1)
  1. TRIZIVIR [Suspect]
     Indication: HIV INFECTION
     Route: 048
     Dates: start: 20010101, end: 20050101

REACTIONS (3)
  - CYTOLYTIC HEPATITIS [None]
  - HEPATIC FIBROSIS [None]
  - HEPATOTOXICITY [None]
